FAERS Safety Report 10245094 (Version 1)
Quarter: 2014Q2

REPORT INFORMATION
  Report Type: Spontaneous
  Country: US (occurrence: US)
  Receive Date: 20140618
  Receipt Date: 20140618
  Transmission Date: 20141212
  Serious: Yes (Hospitalization)
  Sender: FDA-Public Use
  Company Number: US-B.I. PHARMACEUTICALS,INC./RIDGEFIELD-2014-BI-26327DE

PATIENT
  Age: 75 Year
  Sex: Female

DRUGS (17)
  1. GIOTRIF [Suspect]
     Indication: LUNG ADENOCARCINOMA
     Dosage: 20 MG
     Route: 065
     Dates: start: 20140207
  2. ALBUTEROL [Concomitant]
     Indication: WHEEZING
     Route: 055
  3. CLARITIN-D [Concomitant]
     Indication: PERENNIAL ALLERGY
     Route: 048
  4. GABAPENTIN [Concomitant]
     Indication: NEUROPATHY PERIPHERAL
     Dosage: 600 MG
     Route: 048
     Dates: start: 20110815
  5. LISINOPRIL [Concomitant]
     Indication: HYPERTENSION
     Dosage: 10 MG
     Route: 048
     Dates: start: 20130723
  6. ASPIRIN [Concomitant]
     Indication: FACTOR V LEIDEN MUTATION
     Dosage: 81 MG
     Route: 048
     Dates: start: 20110701
  7. ASPIRIN [Concomitant]
     Indication: THROMBOSIS
  8. ASPIRIN [Concomitant]
     Indication: JUGULAR VEIN THROMBOSIS
  9. TRAMADOL [Concomitant]
     Indication: ARTHRALGIA
     Dosage: 50 MG
     Route: 048
     Dates: start: 20120126
  10. ZOLPIDEM TARTRATE [Concomitant]
     Indication: INSOMNIA
     Dosage: 10 MG
     Route: 048
     Dates: start: 20110701
  11. ZOMETA [Concomitant]
     Indication: METASTASES TO BONE
     Dosage: 4 MG
     Route: 042
     Dates: start: 20131010
  12. POTASSIUM CHLORIDE [Concomitant]
     Dosage: 10 U
     Route: 048
     Dates: start: 20120809
  13. COUMADIN [Concomitant]
     Indication: FACTOR V LEIDEN MUTATION
     Dosage: 1 MG
     Route: 048
     Dates: start: 20110829
  14. COUMADIN [Concomitant]
     Indication: THROMBOSIS
  15. COUMADIN [Concomitant]
     Indication: JUGULAR VEIN THROMBOSIS
  16. HYDROCODONE/ACETAMINOPHEN [Concomitant]
     Indication: TUMOUR PAIN
     Dosage: 1 ANZ
     Route: 048
     Dates: start: 20111201
  17. IBUPROFEN [Concomitant]
     Indication: PAIN
     Dosage: 1 ANZ
     Route: 048
     Dates: start: 20131205

REACTIONS (8)
  - Vomiting [Recovered/Resolved]
  - Pneumonia [Unknown]
  - Lung consolidation [Unknown]
  - Pleural effusion [Unknown]
  - Dyspnoea [Unknown]
  - Diarrhoea [Not Recovered/Not Resolved]
  - Nausea [Recovered/Resolved]
  - Dehydration [Unknown]
